FAERS Safety Report 4901075-3 (Version None)
Quarter: 2006Q1

REPORT INFORMATION
  Report Type: 
  Country: None (occurrence: None)
  Receive Date: 20060113
  Receipt Date: 20051130
  Transmission Date: 20060701
  Serious: No
  Sender: FDA-Public Use
  Company Number: 2005SP004198

PATIENT
  Age: 73 Year
  Sex: Female
  Weight: 78.4723 kg

DRUGS (2)
  1. LUNESTA [Suspect]
     Dosage: 2 MG;HS;ORAL
     Route: 048
     Dates: start: 20051101, end: 20051101
  2. LUNESTA [Suspect]
     Dosage: 2 MG;HS;ORAL
     Route: 048
     Dates: start: 20051129, end: 20051129

REACTIONS (4)
  - DYSGEUSIA [None]
  - HEADACHE [None]
  - INSOMNIA [None]
  - SOMNOLENCE [None]
